FAERS Safety Report 7319122-0 (Version None)
Quarter: 2011Q1

REPORT INFORMATION
  Report Type: 
  Country: None (occurrence: None)
  Receive Date: 20110228
  Receipt Date: 20110201
  Transmission Date: 20110831
  Serious: No
  Sender: FDA-Public Use
  Company Number: US-B.I. PHARMACEUTICALS,INC./RIDGEFIELD-2011-BP-03192BP

PATIENT
  Sex: Male

DRUGS (8)
  1. DIGOXIN [Concomitant]
  2. TORSEMIDE [Concomitant]
     Indication: FLUID RETENTION
  3. LIPITOR [Concomitant]
     Indication: BLOOD CHOLESTEROL INCREASED
  4. PRADAXA [Suspect]
     Indication: ATRIAL FIBRILLATION
     Dosage: 300 MG
     Route: 048
     Dates: start: 20110104
  5. AMIODARONE HCL [Concomitant]
     Indication: ATRIAL FIBRILLATION
  6. METFORMIN [Concomitant]
     Indication: DIABETES MELLITUS
  7. AVODART [Concomitant]
     Indication: PROSTATOMEGALY
  8. SPIRONOLACTONE [Concomitant]
     Indication: FLUID RETENTION

REACTIONS (2)
  - HICCUPS [None]
  - ERUCTATION [None]
